FAERS Safety Report 22047475 (Version 10)
Quarter: 2024Q2

REPORT INFORMATION
  Report Type: Report from Study
  Country: US (occurrence: US)
  Receive Date: 20230301
  Receipt Date: 20240511
  Transmission Date: 20240717
  Serious: No
  Sender: FDA-Public Use
  Company Number: US-002147023-NVSC2023US041952

PATIENT
  Sex: Female

DRUGS (1)
  1. KESIMPTA [Suspect]
     Active Substance: OFATUMUMAB
     Indication: Multiple sclerosis
     Dosage: 20 MG, QW
     Route: 058
     Dates: start: 20230213

REACTIONS (8)
  - Tremor [Unknown]
  - Cough [Unknown]
  - Nasal congestion [Unknown]
  - Nausea [Unknown]
  - Pain in extremity [Unknown]
  - Sensation of foreign body [Unknown]
  - Pain [Unknown]
  - Inappropriate schedule of product administration [Unknown]
